FAERS Safety Report 13923757 (Version 1)
Quarter: 2017Q3

REPORT INFORMATION
  Report Type: Spontaneous
  Country: US (occurrence: None)
  Receive Date: 20170830
  Receipt Date: 20170830
  Transmission Date: 20171127
  Serious: Yes (Other)
  Sender: FDA-Public Use
  Company Number: None

PATIENT
  Age: 57 Year
  Sex: Female
  Weight: 66.22 kg

DRUGS (6)
  1. FAMOTADINE [Concomitant]
  2. ALLEGRA [Concomitant]
     Active Substance: FEXOFENADINE HYDROCHLORIDE
  3. VIMPAT [Concomitant]
     Active Substance: LACOSAMIDE
  4. LEVOTHYROXINE. [Suspect]
     Active Substance: LEVOTHYROXINE
     Indication: AUTOIMMUNE THYROIDITIS
     Dates: start: 20170708, end: 20170823
  5. TIROSINT [Concomitant]
     Active Substance: LEVOTHYROXINE SODIUM
  6. BENADRYL [Concomitant]
     Active Substance: DIPHENHYDRAMINE HYDROCHLORIDE

REACTIONS (7)
  - Chronic spontaneous urticaria [None]
  - Abdominal distension [None]
  - Reaction to azo-dyes [None]
  - Product formulation issue [None]
  - Flatulence [None]
  - Angioedema [None]
  - Scratch [None]

NARRATIVE: CASE EVENT DATE: 20170822
